FAERS Safety Report 14119934 (Version 1)
Quarter: 2017Q4

REPORT INFORMATION
  Report Type: Spontaneous
  Country: US (occurrence: US)
  Receive Date: 20171024
  Receipt Date: 20171024
  Transmission Date: 20180321
  Serious: Yes (Other)
  Sender: FDA-Public Use
  Company Number: US-GLAXOSMITHKLINE-US2017GSK162352

PATIENT
  Sex: Female

DRUGS (8)
  1. DILAUDID [Concomitant]
     Active Substance: HYDROMORPHONE HYDROCHLORIDE
     Dosage: 2 MG, PRN
     Route: 048
  2. BENLYSTA [Suspect]
     Active Substance: BELIMUMAB
     Indication: SYSTEMIC LUPUS ERYTHEMATOSUS
  3. ESTRACE [Concomitant]
     Active Substance: ESTRADIOL
     Dosage: 0.5 MG, QD
     Route: 048
  4. NORVASC [Concomitant]
     Active Substance: AMLODIPINE BESYLATE
     Dosage: 2.5 MG, QD
     Route: 048
  5. COLCRYS [Concomitant]
     Active Substance: COLCHICINE
     Dosage: 0.6 MG, QD
     Route: 048
  6. ASPIRIN. [Concomitant]
     Active Substance: ASPIRIN
     Dosage: 81 MG, QD
     Route: 048
  7. PLAQUENIL [Concomitant]
     Active Substance: HYDROXYCHLOROQUINE SULFATE
     Dosage: 200 MG, QD
     Route: 048
  8. LIDODERM [Concomitant]
     Active Substance: LIDOCAINE
     Dosage: 1 DF, QD
     Route: 062

REACTIONS (10)
  - Nausea [Unknown]
  - Peripheral swelling [Unknown]
  - Pain [Unknown]
  - Throat tightness [Unknown]
  - Arthralgia [Unknown]
  - Rash pruritic [Unknown]
  - Dyspnoea [Unknown]
  - Systemic lupus erythematosus [Unknown]
  - Rash erythematous [Unknown]
  - Dizziness [Unknown]
